FAERS Safety Report 11875543 (Version 1)
Quarter: 2015Q4

REPORT INFORMATION
  Report Type: Spontaneous
  Country: US (occurrence: None)
  Receive Date: 20151228
  Receipt Date: 20151228
  Transmission Date: 20160305
  Serious: Yes (Hospitalization)
  Sender: FDA-Public Use
  Company Number: 15-118

PATIENT
  Age: 88 Year
  Sex: Female
  Weight: 56.7 kg

DRUGS (2)
  1. SENNOSIDES/DOCUSATE SODIUM TABLETS, 8.6 MG/50 MG TIME-CAP LABS, INC./P L DEVELOPMENT [Suspect]
     Active Substance: DOCUSATE SODIUM\SENNOSIDES
     Indication: CONSTIPATION
     Dates: start: 20151101, end: 20151123
  2. AMLODIPINE BESYLATE. [Concomitant]
     Active Substance: AMLODIPINE BESYLATE

REACTIONS (1)
  - Intestinal obstruction [None]

NARRATIVE: CASE EVENT DATE: 20151123
